FAERS Safety Report 18545267 (Version 1)
Quarter: 2020Q4

REPORT INFORMATION
  Report Type: Spontaneous
  Country: US (occurrence: US)
  Receive Date: 20201125
  Receipt Date: 20201125
  Transmission Date: 20210114
  Serious: Yes (Other)
  Sender: FDA-Public Use
  Company Number: None

PATIENT
  Age: 62 Year
  Sex: Male
  Weight: 92.25 kg

DRUGS (9)
  1. CLONIDINE. [Suspect]
     Active Substance: CLONIDINE
     Indication: HYPERTENSION
     Dosage: ?          QUANTITY:1 PATCH(ES);OTHER FREQUENCY:PER WEEK;?
     Route: 062
     Dates: start: 20201102, end: 20201123
  2. METOPROLOL TARTR [Concomitant]
  3. LOSARTIN [Concomitant]
     Active Substance: LOSARTAN
  4. GINKGO BILOBA [Concomitant]
     Active Substance: GINKGO
  5. PRAVASTATIN. [Concomitant]
     Active Substance: PRAVASTATIN
  6. AIRBORNE [Concomitant]
     Active Substance: HERBALS\MINERALS\VITAMINS
  7. VITAMIN B12 [Concomitant]
     Active Substance: CYANOCOBALAMIN
  8. HYDROCHLOROTHIAZIDE. [Concomitant]
     Active Substance: HYDROCHLOROTHIAZIDE
  9. CLONIDINE HCL [Concomitant]
     Active Substance: CLONIDINE HYDROCHLORIDE

REACTIONS (7)
  - Application site haemorrhage [None]
  - Application site pain [None]
  - Product quality issue [None]
  - Skin weeping [None]
  - Application site burn [None]
  - Discomfort [None]
  - Application site erythema [None]

NARRATIVE: CASE EVENT DATE: 20201123
